FAERS Safety Report 26044725 (Version 1)
Quarter: 2025Q4

REPORT INFORMATION
  Report Type: Spontaneous
  Country: EU (occurrence: EU)
  Receive Date: 20251114
  Receipt Date: 20251114
  Transmission Date: 20260117
  Serious: Yes (Death, Hospitalization, Other)
  Sender: AUROBINDO
  Company Number: EU-EMA-20150603-antarvp-103244283

PATIENT
  Age: 75 Year
  Sex: Female
  Weight: 63 kg

DRUGS (21)
  1. IRINOTECAN [Suspect]
     Active Substance: IRINOTECAN
     Indication: Colorectal cancer metastatic
     Dosage: 300 MILLIGRAM EVERY 3 WEEKS
     Route: 042
     Dates: start: 20150203, end: 20150407
  2. AVASTIN [Suspect]
     Active Substance: BEVACIZUMAB
     Indication: Colorectal cancer metastatic
     Dosage: 473 MILLIGRAM EVERT 3 WEEKS (MOST RECENT DOSE PRIOR TO EVENT: 11/NOV/2014)
     Route: 042
     Dates: start: 20141109, end: 20141111
  3. AVASTIN [Suspect]
     Active Substance: BEVACIZUMAB
     Dosage: 473 MILLIGRAM EVERT 3 WEEKS
     Route: 042
     Dates: start: 20141111
  4. AVASTIN [Suspect]
     Active Substance: BEVACIZUMAB
     Dosage: 428 MILLIGRAM EVERY 3 WEEK (MOST RECENT DOSE PRIOR TO EVENT: 03/FEB/2015.)
     Route: 042
     Dates: start: 20150203, end: 20150407
  5. AVASTIN [Suspect]
     Active Substance: BEVACIZUMAB
     Dosage: 428 MILLIGRAM EVERY 3 WEEKS
     Route: 042
     Dates: start: 20150317
  6. CAPECITABINE [Suspect]
     Active Substance: CAPECITABINE
     Indication: Colorectal cancer metastatic
     Dosage: 3500 MILLIGRAM (ON DAY 1-14 OF EVERY CYCLE WITH 7 DAY PAUSE)
     Route: 048
     Dates: start: 20140909, end: 20150421
  7. CAPECITABINE [Suspect]
     Active Substance: CAPECITABINE
     Dosage: 2500 MILLIGRAM (ON DAY 1-14 OF EVERY CYCLE WITH 7 DAY PAUSE)
     Route: 048
     Dates: start: 20141223, end: 20150127
  8. CAPECITABINE [Suspect]
     Active Substance: CAPECITABINE
     Dosage: 1650 MILLIGRAM (ON DAY 1-14 OF EVERY CYCLE WITH 7 DAY PAUSE)
     Route: 048
     Dates: start: 20150203, end: 20150421
  9. AMLODIPINE BESYLATE [Concomitant]
     Active Substance: AMLODIPINE BESYLATE
     Indication: Product used for unknown indication
     Dosage: 5 MILLIGRAM, ONCE A DAY
     Route: 065
  10. Aplona [Concomitant]
     Indication: Diarrhoea
     Dosage: 1 DOSAGE FORM, AS NECESSARY
     Route: 048
  11. DEXAMETHASONE [Concomitant]
     Active Substance: DEXAMETHASONE
     Indication: Product used for unknown indication
     Dosage: 8 MILLIGRAM, ONCE A DAY
     Route: 065
  12. HERBALS [Concomitant]
     Active Substance: HERBALS
     Indication: Product used for unknown indication
     Dosage: 30 GTT DROPS, ONCE A DAY (WITH MEALS)
     Route: 048
  13. LEVOTHYROXINE SODIUM [Concomitant]
     Active Substance: LEVOTHYROXINE SODIUM
     Indication: Product used for unknown indication
     Dosage: 100 MICROGRAM, ONCE A DAY
     Route: 065
  14. POLYETHYLENE GLYCOLS [Concomitant]
     Active Substance: POLYETHYLENE GLYCOLS
     Indication: Constipation
     Dosage: 1 DOSAGE FORM, AS NECESSARY
     Route: 048
  15. METOCLOPRAMIDE [Concomitant]
     Active Substance: METOCLOPRAMIDE
     Indication: Product used for unknown indication
     Dosage: 30 MILLIGRAM, ONCE A DAY
     Route: 065
  16. ONDANSETRON [Concomitant]
     Active Substance: ONDANSETRON
     Indication: Product used for unknown indication
     Dosage: 16 MILLIGRAM, ONCE A DAY
     Route: 065
  17. OXYBUTYNIN [Concomitant]
     Active Substance: OXYBUTYNIN
     Indication: Product used for unknown indication
     Dosage: 5 MILLIGRAM, ONCE A DAY
     Route: 065
  18. PANTOPRAZOLE SODIUM [Concomitant]
     Active Substance: PANTOPRAZOLE SODIUM
     Indication: Product used for unknown indication
     Dosage: 40 MILLIGRAM, ONCE A DAY
     Route: 065
  19. RAMIPRIL [Concomitant]
     Active Substance: RAMIPRIL
     Indication: Hypertension
     Dosage: 10 MILLIGRAM, ONCE A DAY
     Route: 048
  20. SIMVASTATIN [Concomitant]
     Active Substance: SIMVASTATIN
     Indication: Product used for unknown indication
     Dosage: 20 MILLIGRAM, ONCE A DAY
     Route: 065
  21. NALOXONE HYDROCHLORIDE\OXYCODONE HYDROCHLORIDE [Concomitant]
     Active Substance: NALOXONE HYDROCHLORIDE\OXYCODONE HYDROCHLORIDE
     Indication: Product used for unknown indication
     Dosage: 60 MILLIGRAM, ONCE A DAY (20/10 MG)
     Route: 065

REACTIONS (12)
  - General physical health deterioration [Fatal]
  - Pulmonary embolism [Recovering/Resolving]
  - Disease progression [Unknown]
  - Palmar-plantar erythrodysaesthesia syndrome [Recovered/Resolved]
  - Abdominal pain [Recovered/Resolved]
  - Diarrhoea [Recovered/Resolved]
  - Gastritis [Recovered/Resolved]
  - Subileus [Recovered/Resolved]
  - Nausea [Recovered/Resolved]
  - Pain [Recovered/Resolved]
  - Vertigo [Recovered/Resolved]
  - Asthenia [Recovered/Resolved]

NARRATIVE: CASE EVENT DATE: 20141124
